FAERS Safety Report 13595657 (Version 1)
Quarter: 2017Q2

REPORT INFORMATION
  Report Type: Spontaneous
  Country: US (occurrence: US)
  Receive Date: 20170531
  Receipt Date: 20170531
  Transmission Date: 20170830
  Serious: No
  Sender: FDA-Public Use
  Company Number: US-JNJFOC-20170425789

PATIENT
  Age: 7 Year
  Sex: Male
  Weight: 31.3 kg

DRUGS (2)
  1. CHILDRENS MOTRIN [Suspect]
     Active Substance: IBUPROFEN
     Route: 048
  2. CHILDRENS MOTRIN [Suspect]
     Active Substance: IBUPROFEN
     Indication: PAIN
     Dosage: DOSE: 2 1/2 TEASPOON
     Route: 048
     Dates: start: 20170421, end: 20170421

REACTIONS (5)
  - Eye swelling [Recovered/Resolved]
  - Product formulation issue [Recovered/Resolved]
  - Somnolence [Recovered/Resolved]
  - Mouth swelling [Recovered/Resolved]
  - Ocular hyperaemia [Recovered/Resolved]

NARRATIVE: CASE EVENT DATE: 20170421
